FAERS Safety Report 16384894 (Version 1)
Quarter: 2019Q2

REPORT INFORMATION
  Report Type: Spontaneous
  Country: US (occurrence: US)
  Receive Date: 20190603
  Receipt Date: 20190603
  Transmission Date: 20190711
  Serious: Yes (Hospitalization)
  Sender: FDA-Public Use
  Company Number: US-TEVA-2019-US-1059559

PATIENT
  Age: 24 Year
  Sex: Female

DRUGS (1)
  1. VIGABATRIN LUNDBECK [Suspect]
     Active Substance: VIGABATRIN
     Dosage: 2000 MILLIGRAM DAILY;
     Route: 048
     Dates: start: 20171230

REACTIONS (1)
  - Seizure [Unknown]

NARRATIVE: CASE EVENT DATE: 20190408
